FAERS Safety Report 17445112 (Version 3)
Quarter: 2023Q1

REPORT INFORMATION
  Report Type: Spontaneous
  Country: US (occurrence: US)
  Receive Date: 20200221
  Receipt Date: 20230214
  Transmission Date: 20230418
  Serious: No
  Sender: FDA-Public Use
  Company Number: US-PFIZER INC-2020076825

PATIENT
  Age: 67 Year
  Sex: Female
  Weight: 68.934 kg

DRUGS (2)
  1. XELJANZ XR [Suspect]
     Active Substance: TOFACITINIB CITRATE
     Indication: Rheumatoid arthritis
     Dosage: 11 MG
     Dates: start: 2012
  2. XELJANZ XR [Suspect]
     Active Substance: TOFACITINIB CITRATE
     Dosage: 11 MG, DAILY
     Route: 048
     Dates: start: 202002

REACTIONS (1)
  - Pain in extremity [Recovered/Resolved]

NARRATIVE: CASE EVENT DATE: 20200201
